FAERS Safety Report 10048522 (Version 2)
Quarter: 2014Q1

REPORT INFORMATION
  Report Type: Spontaneous
  Country: FR (occurrence: FR)
  Receive Date: 20140331
  Receipt Date: 20140331
  Transmission Date: 20141002
  Serious: Yes (Hospitalization)
  Sender: FDA-Public Use
  Company Number: FR-ELI_LILLY_AND_COMPANY-FR201310004191

PATIENT
  Age: 56 Year
  Sex: Male

DRUGS (9)
  1. ALIMTA [Suspect]
     Indication: PRODUCT USED FOR UNKNOWN INDICATION
     Dosage: 785 MG, UNK
     Route: 042
     Dates: start: 20130613
  2. ALIMTA [Suspect]
     Dosage: 795 MG, UNK
     Route: 042
     Dates: end: 20130830
  3. CARBOPLATIN [Suspect]
     Dosage: 745 MG, UNK
     Route: 042
     Dates: start: 20130613
  4. CARBOPLATIN [Suspect]
     Dosage: 845 MG, UNK
     Route: 042
  5. CARBOPLATIN [Suspect]
     Dosage: 650 MG, UNK
     Route: 042
     Dates: end: 20130830
  6. PLAVIX [Concomitant]
     Dosage: 75 MG, UNK
     Route: 048
  7. INDACATEROL MALEATE [Concomitant]
     Dosage: 150 UG, QD
     Route: 055
     Dates: start: 20130604
  8. TOPALGIC [Concomitant]
  9. DOLIPRANE [Concomitant]
     Dosage: 1 DF, EVERY 6 HRS

REACTIONS (3)
  - Pancytopenia [Recovered/Resolved]
  - Syncope [Unknown]
  - Weight decreased [Unknown]
